FAERS Safety Report 7477661-6 (Version None)
Quarter: 2011Q2

REPORT INFORMATION
  Report Type: 
  Country: None (occurrence: None)
  Receive Date: 20110513
  Receipt Date: 20110119
  Transmission Date: 20111010
  Serious: Yes (Other)
  Sender: FDA-Public Use
  Company Number: US-BAYER-201035818NA

PATIENT
  Age: 27 Year
  Sex: Female
  Weight: 108.84 kg

DRUGS (10)
  1. LEXAPRO [Concomitant]
     Indication: ANXIETY
     Dosage: UNK
     Dates: start: 20100101
  2. ASACOL [Concomitant]
     Indication: COLITIS ULCERATIVE
     Dosage: 400 MG, TID
     Route: 048
  3. IBUPROFEN (ADVIL) [Concomitant]
     Indication: HEADACHE
  4. COLAZAL [Concomitant]
     Indication: COLITIS ULCERATIVE
     Dosage: 750 MG, TID
     Route: 048
  5. ROLAIDS [Concomitant]
     Indication: ABDOMINAL PAIN UPPER
     Dosage: UNK
     Dates: start: 20040101, end: 20050101
  6. PREVACID [Concomitant]
     Indication: ABDOMINAL PAIN UPPER
     Dosage: UNK
     Dates: start: 20050101
  7. ANTIBIOTICS [Concomitant]
     Indication: PRODUCT USED FOR UNKNOWN INDICATION
     Dosage: UNK UNK, PRN
     Dates: start: 20000101
  8. MAALOX [ALUMINIUM HYDROXIDE,MAGNESIUM HYDROXIDE] [Concomitant]
     Indication: ABDOMINAL PAIN UPPER
     Dosage: UNK
     Dates: start: 20040101, end: 20050101
  9. YASMIN [Suspect]
     Indication: CONTRACEPTION
     Dates: start: 20040701, end: 20061201
  10. IBUPROFEN (ADVIL) [Concomitant]
     Indication: PAIN

REACTIONS (3)
  - CHOLELITHIASIS [None]
  - CHOLECYSTITIS CHRONIC [None]
  - GALLBLADDER DISORDER [None]
